FAERS Safety Report 12753570 (Version 4)
Quarter: 2016Q4

REPORT INFORMATION
  Report Type: Spontaneous
  Country: US (occurrence: US)
  Receive Date: 20160916
  Receipt Date: 20161128
  Transmission Date: 20170207
  Serious: Yes (Hospitalization, Other)
  Sender: FDA-Public Use
  Company Number: US-PFIZER INC-2016431272

PATIENT
  Age: 21 Year
  Sex: Female

DRUGS (1)
  1. DEPO-PROVERA [Suspect]
     Active Substance: MEDROXYPROGESTERONE ACETATE
     Indication: CONTRACEPTION
     Dosage: UNK
     Dates: start: 201504, end: 201507

REACTIONS (21)
  - Menorrhagia [Recovered/Resolved]
  - Panic attack [Unknown]
  - Self-injurious ideation [Unknown]
  - Injection site scar [Unknown]
  - Malaise [Not Recovered/Not Resolved]
  - Skin disorder [Unknown]
  - Feeling abnormal [Unknown]
  - Feeling cold [Unknown]
  - Abdominal pain upper [Unknown]
  - Nail growth abnormal [Unknown]
  - Blood mercury abnormal [Unknown]
  - Thyroid disorder [Not Recovered/Not Resolved]
  - Anxiety [Unknown]
  - Loss of libido [Unknown]
  - Hair growth abnormal [Unknown]
  - Pain [Unknown]
  - Weight increased [Not Recovered/Not Resolved]
  - Fatigue [Not Recovered/Not Resolved]
  - Pyrexia [Unknown]
  - Depression [Unknown]
  - Headache [Unknown]

NARRATIVE: CASE EVENT DATE: 201504
